FAERS Safety Report 17356369 (Version 7)
Quarter: 2021Q4

REPORT INFORMATION
  Report Type: Report from Study
  Country: US (occurrence: US)
  Receive Date: 20200131
  Receipt Date: 20211007
  Transmission Date: 20220303
  Serious: Yes (Other)
  Sender: FDA-Public Use
  Company Number: US-SHIRE-US202003207

PATIENT
  Sex: Male
  Weight: 73 kg

DRUGS (17)
  1. HUMAN IMMUNOGLOBULIN G\HYALURONIDASE RECOMBINANT HUMAN [Suspect]
     Active Substance: HUMAN IMMUNOGLOBULIN G\HYALURONIDASE RECOMBINANT HUMAN
     Indication: Immunodeficiency common variable
     Dosage: 30 GRAM, Q4WEEKS
     Route: 058
     Dates: start: 20181016
  2. SODIUM CHLORIDE [Concomitant]
     Active Substance: SODIUM CHLORIDE
  3. ACETAMINOPHEN [Concomitant]
     Active Substance: ACETAMINOPHEN
  4. DIPHENHYDRAMINE [Concomitant]
     Active Substance: DIPHENHYDRAMINE
  5. LIDOCAINE [Concomitant]
     Active Substance: LIDOCAINE
  6. SODIUM CHLORIDE [Concomitant]
     Active Substance: SODIUM CHLORIDE
  7. EPINEPHRINE [Concomitant]
     Active Substance: EPINEPHRINE
  8. NASACORT [Concomitant]
     Active Substance: TRIAMCINOLONE ACETONIDE
  9. MONTELUKAST [Concomitant]
     Active Substance: MONTELUKAST SODIUM
  10. ATORVASTATIN [Concomitant]
     Active Substance: ATORVASTATIN
  11. INCRUSE ELLIPTA [Concomitant]
     Active Substance: UMECLIDINIUM BROMIDE
  12. NEXIUM [Concomitant]
     Active Substance: ESOMEPRAZOLE MAGNESIUM
  13. ALBUTEROL [Concomitant]
     Active Substance: ALBUTEROL
  14. INCRUSE ELLIPTA [Concomitant]
     Active Substance: UMECLIDINIUM BROMIDE
  15. BREO ELLIPTA [Concomitant]
     Active Substance: FLUTICASONE FUROATE\VILANTEROL TRIFENATATE
  16. MINERALS\VITAMINS [Concomitant]
     Active Substance: MINERALS\VITAMINS
     Dosage: UNK
  17. MODERNA COVID-19 VACCINE [Concomitant]
     Active Substance: CX-024414

REACTIONS (5)
  - Lower respiratory tract infection [Unknown]
  - Seasonal allergy [Unknown]
  - Infusion site urticaria [Unknown]
  - Infusion site erythema [Unknown]
  - Nerve injury [Unknown]
